APPROVED DRUG PRODUCT: ARGATROBAN IN 0.9% SODIUM CHLORIDE
Active Ingredient: ARGATROBAN
Strength: 250MG/250ML (1MG/ML)
Dosage Form/Route: INJECTABLE;INTRAVENOUS
Application: N206769 | Product #001
Applicant: TEVA PHARMACEUTICALS USA
Approved: Dec 15, 2014 | RLD: No | RS: No | Type: DISCN